FAERS Safety Report 7086133-2 (Version None)
Quarter: 2010Q4

REPORT INFORMATION
  Report Type: 
  Country: None (occurrence: None)
  Receive Date: 20101105
  Receipt Date: 20101028
  Transmission Date: 20110411
  Serious: Yes (Other)
  Sender: FDA-Public Use
  Company Number: B0682866A

PATIENT
  Sex: Male
  Weight: 150 kg

DRUGS (2)
  1. ARIXTRA [Suspect]
     Indication: PULMONARY EMBOLISM
     Dosage: 10MG PER DAY
     Route: 058
     Dates: start: 20100101, end: 20100101
  2. LMW HEPARIN [Concomitant]
     Indication: THROMBOSIS PROPHYLAXIS
     Route: 065

REACTIONS (1)
  - HAEMATEMESIS [None]
